FAERS Safety Report 17760326 (Version 1)
Quarter: 2020Q2

REPORT INFORMATION
  Report Type: Spontaneous
  Country: LT (occurrence: LT)
  Receive Date: 20200508
  Receipt Date: 20200508
  Transmission Date: 20200714
  Serious: Yes (Death, Other)
  Sender: FDA-Public Use
  Company Number: LT-FRESENIUS KABI-FK202004422

PATIENT
  Age: 13 Year
  Sex: Female

DRUGS (4)
  1. DEXAMETHASONE. [Suspect]
     Active Substance: DEXAMETHASONE
     Indication: HODGKIN^S DISEASE STAGE IV
     Dosage: ON DAYS 1 TO 4
     Route: 042
  2. BENDAMUSTINE [Suspect]
     Active Substance: BENDAMUSTINE
     Indication: HODGKIN^S DISEASE STAGE IV
     Dosage: ON DAY 1 AND 2
     Route: 042
  3. GEMCITABINE. [Suspect]
     Active Substance: GEMCITABINE
     Indication: HODGKIN^S DISEASE STAGE IV
     Dosage: ON DAY 1 AND 4
     Route: 042
  4. DEXAMETHASONE. [Suspect]
     Active Substance: DEXAMETHASONE
     Dosage: ON DAY 1 TO 4
     Route: 042

REACTIONS (8)
  - Obstructive airways disorder [Fatal]
  - Neuralgia [Unknown]
  - Dysphagia [Unknown]
  - Pyrexia [Unknown]
  - Cardiac arrest [Unknown]
  - Dyspnoea [Unknown]
  - Pain in extremity [Unknown]
  - Choking [Unknown]
